FAERS Safety Report 7353917-2 (Version None)
Quarter: 2011Q1

REPORT INFORMATION
  Report Type: 
  Country: None (occurrence: None)
  Receive Date: 20110315
  Receipt Date: 20110309
  Transmission Date: 20110831
  Serious: Yes (Life-Threatening, Hospitalization, Other)
  Sender: FDA-Public Use
  Company Number: US-ELI_LILLY_AND_COMPANY-US201103003766

PATIENT
  Age: 16 Year
  Sex: Male
  Weight: 90.703 kg

DRUGS (3)
  1. STRATTERA [Suspect]
     Dosage: 80 MG, UNK
  2. STRATTERA [Suspect]
     Dosage: 60 MG, UNK
  3. ABILIFY [Concomitant]

REACTIONS (2)
  - CARDIAC FAILURE [None]
  - PNEUMONIA [None]
